FAERS Safety Report 7742888-2 (Version None)
Quarter: 2011Q3

REPORT INFORMATION
  Report Type: 
  Country: None (occurrence: None)
  Receive Date: 20110831
  Receipt Date: 20110819
  Transmission Date: 20111222
  Serious: Yes (Hospitalization, Other)
  Sender: FDA-Public Use
  Company Number: 2011SP039780

PATIENT
  Sex: Female

DRUGS (2)
  1. RIBAVIRIN [Suspect]
     Indication: HEPATITIS C
     Dates: start: 20091106, end: 20101001
  2. PEGASYS [Suspect]
     Indication: HEPATITIS C
     Dates: start: 20091106, end: 20101001

REACTIONS (3)
  - ALOPECIA [None]
  - PNEUMONIA [None]
  - DRY SKIN [None]
